FAERS Safety Report 10284988 (Version 6)
Quarter: 2015Q2

REPORT INFORMATION
  Report Type: Spontaneous
  Country: JP (occurrence: JP)
  Receive Date: 20140708
  Receipt Date: 20150427
  Transmission Date: 20150821
  Serious: Yes (Hospitalization, Other)
  Sender: FDA-Public Use
  Company Number: JP-GLAXOSMITHKLINE-B1011005A

PATIENT
  Age: 46 Year
  Sex: Female
  Weight: 48 kg

DRUGS (2)
  1. PAZOPANIB [Suspect]
     Active Substance: PAZOPANIB
     Indication: UTERINE LEIOMYOSARCOMA
     Dosage: 400 MG, QD
     Route: 048
     Dates: start: 20140522, end: 20140604
  2. PAZOPANIB [Suspect]
     Active Substance: PAZOPANIB
     Dosage: 200 MG, QD
     Route: 048
     Dates: start: 20140617, end: 20140625

REACTIONS (7)
  - Hyperbilirubinaemia [Recovered/Resolved]
  - Drug-induced liver injury [Unknown]
  - Hepatic enzyme increased [Unknown]
  - Febrile neutropenia [Recovered/Resolved]
  - Jaundice [Recovering/Resolving]
  - Blood bilirubin increased [Recovered/Resolved]
  - Pyrexia [Unknown]

NARRATIVE: CASE EVENT DATE: 20140607
